FAERS Safety Report 23245602 (Version 1)
Quarter: 2023Q4

REPORT INFORMATION
  Report Type: Spontaneous
  Country: IT (occurrence: IT)
  Receive Date: 20231130
  Receipt Date: 20231130
  Transmission Date: 20240110
  Serious: Yes (Other)
  Sender: FDA-Public Use
  Company Number: None

PATIENT
  Age: 67 Year
  Sex: Female

DRUGS (2)
  1. CISPLATIN [Suspect]
     Active Substance: CISPLATIN
     Indication: Lung neoplasm malignant
     Dosage: 140 MG
     Dates: start: 20230927, end: 20230927
  2. GEMCITABINE [Suspect]
     Active Substance: GEMCITABINE
     Indication: Lung neoplasm malignant
     Dosage: 1600 MG
     Dates: start: 20230927, end: 20230927

REACTIONS (2)
  - Gastrointestinal toxicity [Unknown]
  - Anaemia [Unknown]

NARRATIVE: CASE EVENT DATE: 20231013
